FAERS Safety Report 8788718 (Version 7)
Quarter: 2020Q4

REPORT INFORMATION
  Report Type: Spontaneous
  Country: BR (occurrence: BR)
  Receive Date: 20120917
  Receipt Date: 20201103
  Transmission Date: 20210114
  Serious: Yes (Hospitalization, Other)
  Sender: FDA-Public Use
  Company Number: BR-AMGEN-BRASP2012058199

PATIENT
  Age: 65 Year
  Sex: Female
  Weight: 70 kg

DRUGS (3)
  1. NEBILET [Concomitant]
     Active Substance: NEBIVOLOL
     Dosage: UNK
  2. ARAVA [Suspect]
     Active Substance: LEFLUNOMIDE
     Indication: PRODUCT USED FOR UNKNOWN INDICATION
     Dosage: UNK
     Route: 065
  3. ENBREL [Suspect]
     Active Substance: ETANERCEPT
     Indication: RHEUMATOID ARTHRITIS
     Dosage: 50 MILLIGRAM, QWK
     Route: 058
     Dates: start: 201201, end: 201403

REACTIONS (16)
  - Dyspnoea [Recovered/Resolved]
  - Fall [Recovered/Resolved]
  - Fatigue [Not Recovered/Not Resolved]
  - Hair colour changes [Not Recovered/Not Resolved]
  - Pleural effusion [Recovered/Resolved]
  - Pulmonary mass [Recovered/Resolved]
  - Hair texture abnormal [Not Recovered/Not Resolved]
  - Wrong technique in product usage process [Unknown]
  - Nodule [Recovered/Resolved]
  - Pulmonary cavitation [Recovered/Resolved]
  - Atelectasis [Recovered/Resolved]
  - Chest pain [Recovered/Resolved]
  - Gait disturbance [Not Recovered/Not Resolved]
  - Injection site pain [Recovered/Resolved]
  - Therapeutic response decreased [Recovered/Resolved]
  - Face injury [Recovered/Resolved]

NARRATIVE: CASE EVENT DATE: 2012
